FAERS Safety Report 5064160-4 (Version None)
Quarter: 2006Q3

REPORT INFORMATION
  Report Type: 
  Country: None (occurrence: None)
  Receive Date: 20060728
  Receipt Date: 20051221
  Transmission Date: 20061208
  Serious: No
  Sender: FDA-Public Use
  Company Number: US-GLAXOSMITHKLINE-A0586622A

PATIENT
  Age: 3 Week
  Sex: Female

DRUGS (2)
  1. ZANTAC [Suspect]
     Dosage: .3ML TWICE PER DAY
     Route: 048
  2. NO CONCURRENT MEDICATION [Concomitant]

REACTIONS (5)
  - CONSTIPATION [None]
  - CRYING [None]
  - GAIT DISTURBANCE [None]
  - LETHARGY [None]
  - SOMNOLENCE [None]
